FAERS Safety Report 15083533 (Version 1)
Quarter: 2018Q2

REPORT INFORMATION
  Report Type: Spontaneous
  Country: US (occurrence: US)
  Receive Date: 20180607
  Receipt Date: 20180607
  Transmission Date: 20180711
  Serious: No
  Sender: FDA-Public Use
  Company Number: None

PATIENT
  Age: 68 Year
  Sex: Male

DRUGS (5)
  1. ACETAMINOPHEN-HYDROCODONE [Concomitant]
     Active Substance: ACETAMINOPHEN\HYDROCODONE
  2. IBUPROFEN. [Concomitant]
     Active Substance: IBUPROFEN
  3. CARFILZOMIB [Suspect]
     Active Substance: CARFILZOMIB
     Indication: WALDENSTROM^S MACROGLOBULINAEMIA
     Dosage: ?          OTHER FREQUENCY:DAYS 1,8,15;?
     Route: 042
     Dates: start: 20180423, end: 20180530
  4. ACYCLOVIR. [Concomitant]
     Active Substance: ACYCLOVIR
  5. SILDENAFIL. [Concomitant]
     Active Substance: SILDENAFIL

REACTIONS (6)
  - Anaemia [None]
  - Nephropathy toxic [None]
  - Dyspnoea [None]
  - Blood creatinine increased [None]
  - Haematotoxicity [None]
  - Hyperkalaemia [None]
